FAERS Safety Report 7320198-5 (Version None)
Quarter: 2011Q1

REPORT INFORMATION
  Report Type: 
  Country: None (occurrence: None)
  Receive Date: 20110223
  Receipt Date: 20110223
  Transmission Date: 20110831
  Serious: Yes (Hospitalization)
  Sender: FDA-Public Use
  Company Number: None

PATIENT
  Age: 76 Year
  Sex: Male
  Weight: 65 kg

DRUGS (2)
  1. CARBOPLATIN [Suspect]
     Indication: NEOPLASM
     Dosage: 500 MG ONCE IV
     Route: 042
     Dates: start: 20110127, end: 20110127
  2. PACLITAXEL [Suspect]
     Indication: NEOPLASM
     Dosage: 230 MG ONCE IV
     Route: 042
     Dates: start: 20110127, end: 20110127

REACTIONS (1)
  - NEUTROPENIA [None]
